FAERS Safety Report 7823600-5 (Version None)
Quarter: 2011Q4

REPORT INFORMATION
  Report Type: 
  Country: None (occurrence: None)
  Receive Date: 20111019
  Receipt Date: 20111014
  Transmission Date: 20120403
  Serious: Yes (Death, Hospitalization)
  Sender: FDA-Public Use
  Company Number: US-PFIZER INC-2011077480

PATIENT
  Sex: Male

DRUGS (2)
  1. CORDARONE [Suspect]
     Dosage: UNK
     Dates: start: 20100101
  2. WARFARIN SODIUM [Suspect]
     Dosage: UNK

REACTIONS (2)
  - DRUG ADMINISTRATION ERROR [None]
  - DEATH [None]
